FAERS Safety Report 6022994-3 (Version None)
Quarter: 2008Q4

REPORT INFORMATION
  Report Type: 
  Country: None (occurrence: None)
  Receive Date: 20081230
  Receipt Date: 20080624
  Transmission Date: 20090506
  Serious: No
  Sender: FDA-Public Use
  Company Number: US-ABBOTT-08P-163-0459335-00

PATIENT
  Sex: Female
  Weight: 3.494 kg

DRUGS (5)
  1. OMNICEF [Suspect]
     Indication: OTITIS MEDIA
     Route: 048
     Dates: start: 20080619, end: 20080627
  2. OMNICEF [Suspect]
     Indication: UPPER RESPIRATORY TRACT INFECTION
  3. RONDEC DM [Concomitant]
     Indication: UPPER RESPIRATORY TRACT INFECTION
     Route: 048
  4. AZITHROMYCIN [Concomitant]
     Indication: UPPER RESPIRATORY TRACT INFECTION
     Route: 048
     Dates: start: 20080627, end: 20080627
  5. AZITHROMYCIN [Concomitant]
     Route: 048
     Dates: start: 20080628

REACTIONS (1)
  - FAECES DISCOLOURED [None]
